FAERS Safety Report 9184720 (Version 1)
Quarter: 2013Q1

REPORT INFORMATION
  Report Type: Spontaneous
  Country: PR (occurrence: PR)
  Receive Date: 20130324
  Receipt Date: 20130324
  Transmission Date: 20140127
  Serious: Yes (Hospitalization)
  Sender: FDA-Public Use
  Company Number: PR-009507513-1303PRI008856

PATIENT
  Sex: 0

DRUGS (1)
  1. ALENDRONATE SODIUM [Suspect]

REACTIONS (4)
  - Appendicitis [Unknown]
  - Appendicectomy [Unknown]
  - Vaginal haemorrhage [Unknown]
  - Pain [Unknown]
